FAERS Safety Report 4585927-2 (Version None)
Quarter: 2005Q1

REPORT INFORMATION
  Report Type: 
  Country: None (occurrence: None)
  Receive Date: 20050214
  Receipt Date: 20050131
  Transmission Date: 20050727
  Serious: Yes (Other)
  Sender: FDA-Public Use
  Company Number: 2005013540

PATIENT
  Age: 28 Year
  Sex: Female

DRUGS (5)
  1. PREDNISONE [Suspect]
     Indication: ROSACEA
     Dosage: 35 MG
  2. ERYTHROMYCIN [Suspect]
     Indication: ROSACEA
     Dosage: 1 D
  3. INSULIN [Suspect]
     Indication: DIABETES MELLITUS
     Dosage: 1 D
  4. MIFEPRISTONE (MIFEPRISTONE) [Suspect]
     Indication: ILL-DEFINED DISORDER
     Dosage: 1 D
  5. DINOPROSTONE (DINOPROSTONE) [Suspect]
     Indication: ILL-DEFINED DISORDER
     Dosage: (1 D)

REACTIONS (8)
  - BODY MASS INDEX INCREASED [None]
  - CAESAREAN SECTION [None]
  - DRUG EXPOSURE DURING PREGNANCY [None]
  - GESTATIONAL DIABETES [None]
  - INDUCED LABOUR [None]
  - INTRA-UTERINE DEATH [None]
  - OLIGOHYDRAMNIOS [None]
  - PREGNANCY [None]
